FAERS Safety Report 13240536 (Version 1)
Quarter: 2017Q1

REPORT INFORMATION
  Report Type: Spontaneous
  Country: US (occurrence: US)
  Receive Date: 20170216
  Receipt Date: 20170216
  Transmission Date: 20170428
  Serious: No
  Sender: FDA-Public Use
  Company Number: US-RELYPSA-RLY2016003617

PATIENT
  Sex: Male

DRUGS (13)
  1. AMLODIPINE BESYLATE. [Concomitant]
     Active Substance: AMLODIPINE BESYLATE
  2. VELTASSA [Suspect]
     Active Substance: PATIROMER
     Indication: HYPERKALAEMIA
     Dosage: 16.8 G, QD
     Route: 048
     Dates: start: 20161105
  3. FERROUS SULFATE. [Concomitant]
     Active Substance: FERROUS SULFATE
  4. DIOVAN [Concomitant]
     Active Substance: VALSARTAN
  5. HYDRALAZINE HCL [Concomitant]
     Active Substance: HYDRALAZINE HYDROCHLORIDE
  6. CALCITRIOL. [Concomitant]
     Active Substance: CALCITRIOL
  7. RENVELA [Concomitant]
     Active Substance: SEVELAMER CARBONATE
  8. VELTASSA [Suspect]
     Active Substance: PATIROMER
     Dosage: 8.4 G, UNKNOWN
     Route: 048
     Dates: start: 2016, end: 2016
  9. PROCRIT [Concomitant]
     Active Substance: ERYTHROPOIETIN
  10. MONTELUKAST SODIUM. [Concomitant]
     Active Substance: MONTELUKAST SODIUM
  11. SODIUM BICARBONATE. [Concomitant]
     Active Substance: SODIUM BICARBONATE
  12. SIMETHICONE (DIMETHICONE) [Concomitant]
     Active Substance: DIMETHICONE
  13. FUROSEMIDE. [Concomitant]
     Active Substance: FUROSEMIDE

REACTIONS (3)
  - Rash macular [Not Recovered/Not Resolved]
  - Acne [Not Recovered/Not Resolved]
  - Skin irritation [Not Recovered/Not Resolved]

NARRATIVE: CASE EVENT DATE: 2016
